FAERS Safety Report 7389439-2 (Version None)
Quarter: 2011Q2

REPORT INFORMATION
  Report Type: 
  Country: None (occurrence: None)
  Receive Date: 20110401
  Receipt Date: 20110323
  Transmission Date: 20111010
  Serious: Yes (Hospitalization)
  Sender: FDA-Public Use
  Company Number: US-BRISTOL-MYERS SQUIBB COMPANY-15630676

PATIENT
  Sex: Female

DRUGS (3)
  1. REMICADE [Suspect]
     Dosage: INFUSION
  2. ABILIFY [Suspect]
     Indication: DEPRESSION
     Dates: start: 20090101
  3. CYMBALTA [Suspect]

REACTIONS (3)
  - RENAL FAILURE [None]
  - THROMBOCYTOPENIA [None]
  - HEPATIC FAILURE [None]
